FAERS Safety Report 5579124-1 (Version None)
Quarter: 2007Q4

REPORT INFORMATION
  Report Type: 
  Country: None (occurrence: None)
  Receive Date: 20071227
  Receipt Date: 20071227
  Transmission Date: 20080405
  Serious: Yes (Life-Threatening, Other)
  Sender: FDA-Public Use
  Company Number: None

PATIENT
  Age: 68 Year
  Sex: Female
  Weight: 82.5547 kg

DRUGS (2)
  1. TAXOTERE [Suspect]
     Indication: LUNG NEOPLASM MALIGNANT
     Dosage: 140 MG EVERY THREE WEEKS IV
     Route: 042
     Dates: start: 20071129, end: 20071220
  2. TAXOTERE [Suspect]

REACTIONS (4)
  - CYANOSIS [None]
  - DYSPNOEA [None]
  - LOSS OF CONSCIOUSNESS [None]
  - PULSE ABSENT [None]
